FAERS Safety Report 9425888 (Version 1)
Quarter: 2013Q3

REPORT INFORMATION
  Report Type: Spontaneous
  Country: IT (occurrence: IT)
  Receive Date: 20130729
  Receipt Date: 20130729
  Transmission Date: 20140515
  Serious: Yes (Congenital Anomaly)
  Sender: FDA-Public Use
  Company Number: IT-ELI_LILLY_AND_COMPANY-IT201307008810

PATIENT
  Sex: 0

DRUGS (2)
  1. HUMAN INSULIN (RDNA ORIGIN) NPH [Suspect]
     Route: 064
  2. HUMAN INSULIN (RDNA ORIGIN) NPH [Suspect]
     Route: 064

REACTIONS (2)
  - Atrial septal defect [Unknown]
  - Foetal exposure during pregnancy [Recovered/Resolved]
